FAERS Safety Report 22612913 (Version 1)
Quarter: 2023Q2

REPORT INFORMATION
  Report Type: Spontaneous
  Country: CN (occurrence: CN)
  Receive Date: 20230617
  Receipt Date: 20230617
  Transmission Date: 20230722
  Serious: No
  Sender: FDA-Public Use
  Company Number: CN202305014987

PATIENT
  Age: 69 Year
  Sex: Male
  Weight: 90 kg

DRUGS (4)
  1. BENDAMUSTINE HYDROCHLORIDE [Suspect]
     Active Substance: BENDAMUSTINE HYDROCHLORIDE
     Indication: Chronic lymphocytic leukaemia
     Dosage: 187.5 MG, CYCLE 1 BR THERAPY
     Route: 065
     Dates: start: 20230420
  2. BENDAMUSTINE HYDROCHLORIDE [Suspect]
     Active Substance: BENDAMUSTINE HYDROCHLORIDE
     Dosage: 103.1 MG, CYCLE 2 BR THERAPY
     Route: 065
     Dates: start: 20230519
  3. RITUXIMAB [Suspect]
     Active Substance: RITUXIMAB
     Indication: Chronic lymphocytic leukaemia
     Dosage: 781.2 MG, CYCLE 1 BR THERAPY
     Route: 065
     Dates: start: 20230420
  4. RITUXIMAB [Suspect]
     Active Substance: RITUXIMAB
     Dosage: 1030.8 MG, CYCLE 2 BR THERAPY
     Route: 065
     Dates: start: 20230519

REACTIONS (1)
  - COVID-19 [Not Recovered/Not Resolved]

NARRATIVE: CASE EVENT DATE: 20230522
